FAERS Safety Report 22123316 (Version 8)
Quarter: 2023Q4

REPORT INFORMATION
  Report Type: Report from Study
  Country: US (occurrence: US)
  Receive Date: 20230322
  Receipt Date: 20231218
  Transmission Date: 20240110
  Serious: No
  Sender: FDA-Public Use
  Company Number: US-002147023-NVSC2023US064208

PATIENT
  Age: 79 Year
  Sex: Female

DRUGS (4)
  1. LEQVIO [Suspect]
     Active Substance: INCLISIRAN SODIUM
     Indication: Product used for unknown indication
     Dosage: UNK
     Route: 058
     Dates: start: 20220127
  2. LEQVIO [Suspect]
     Active Substance: INCLISIRAN SODIUM
     Dosage: UNK
     Route: 058
  3. LEQVIO [Suspect]
     Active Substance: INCLISIRAN SODIUM
     Dosage: UNK
     Route: 065
  4. PLAVIX [Concomitant]
     Active Substance: CLOPIDOGREL BISULFATE
     Indication: Product used for unknown indication
     Dosage: UNK
     Route: 065

REACTIONS (8)
  - Blood pressure fluctuation [Unknown]
  - Chest discomfort [Unknown]
  - Fall [Unknown]
  - Shoulder fracture [Unknown]
  - Pain [Unknown]
  - Dyspnoea [Unknown]
  - Pain in extremity [Unknown]
  - Injection site pain [Unknown]

NARRATIVE: CASE EVENT DATE: 20220127
